FAERS Safety Report 8053896-9 (Version None)
Quarter: 2012Q1

REPORT INFORMATION
  Report Type: 
  Country: None (occurrence: None)
  Receive Date: 20120118
  Receipt Date: 20120106
  Transmission Date: 20120608
  Serious: Yes (Hospitalization)
  Sender: FDA-Public Use
  Company Number: FR-ELI_LILLY_AND_COMPANY-FR201201001688

PATIENT
  Sex: Female

DRUGS (8)
  1. TARCEVA [Concomitant]
     Indication: LUNG NEOPLASM MALIGNANT
     Dosage: 150 MG, UNK
     Route: 048
     Dates: start: 20110305, end: 20110316
  2. MINOCYCLINE HCL [Concomitant]
     Dosage: 100 MG, QD
     Route: 048
     Dates: start: 20111116
  3. VITAMIN B-12 [Concomitant]
     Dosage: 1 G, WEEKLY (1/W)
     Route: 048
     Dates: start: 20111116
  4. OXYCONTIN [Concomitant]
     Indication: LUNG NEOPLASM MALIGNANT
     Dosage: 20 MG, QD
     Route: 048
  5. ALIMTA [Suspect]
     Indication: LUNG NEOPLASM MALIGNANT
     Dosage: 500 MG, UNKNOWN
     Route: 042
     Dates: start: 20111116
  6. LEVOTHYROXINE SODIUM [Concomitant]
     Dosage: UNK
     Route: 048
     Dates: start: 20110301
  7. LYRICA [Concomitant]
     Dosage: UNK, QD
     Route: 048
  8. FOLIC ACID [Concomitant]
     Dosage: 0.4 MG, QD
     Route: 048
     Dates: start: 20111116

REACTIONS (5)
  - FAECALOMA [None]
  - HYPERTHERMIA [None]
  - BONE MARROW FAILURE [None]
  - RASH MACULAR [None]
  - URINE ANALYSIS ABNORMAL [None]
